FAERS Safety Report 8277927-6 (Version None)
Quarter: 2012Q2

REPORT INFORMATION
  Report Type: 
  Country: None (occurrence: None)
  Receive Date: 20120412
  Receipt Date: 20120406
  Transmission Date: 20120825
  Serious: Yes (Other)
  Sender: FDA-Public Use
  Company Number: US-ALLERGAN-1204990US

PATIENT
  Age: 78 Year
  Sex: Female

DRUGS (2)
  1. REFRESH PLUS [Suspect]
     Indication: DRY EYE
     Dosage: 2 GTT, PRN
     Route: 047
     Dates: start: 20110901, end: 20120406
  2. REFRESH PLUS [Suspect]
     Dosage: 2 GTT, PRN
     Route: 047
     Dates: start: 20100101

REACTIONS (6)
  - VISION BLURRED [None]
  - EYE IRRITATION [None]
  - EYE BURNS [None]
  - EYE PAIN [None]
  - KERATITIS HERPETIC [None]
  - VISUAL ACUITY REDUCED [None]
